FAERS Safety Report 23459917 (Version 2)
Quarter: 2024Q1

REPORT INFORMATION
  Report Type: Spontaneous
  Country: US (occurrence: US)
  Receive Date: 20240131
  Receipt Date: 20240314
  Transmission Date: 20240410
  Serious: No
  Sender: FDA-Public Use
  Company Number: US-862174955-ML2024-00547

PATIENT
  Age: 85 Year
  Sex: Female
  Weight: 54.43 kg

DRUGS (1)
  1. DORZOLAMIDE HYDROCHLORIDE\TIMOLOL MALEATE [Suspect]
     Active Substance: DORZOLAMIDE HYDROCHLORIDE\TIMOLOL MALEATE
     Indication: Glaucoma
     Dosage: STRENGTH: 2%-0.5%
     Route: 047

REACTIONS (3)
  - Product dose omission issue [Unknown]
  - Product container issue [Unknown]
  - No adverse event [Unknown]
